FAERS Safety Report 4551952-0 (Version None)
Quarter: 2005Q1

REPORT INFORMATION
  Report Type: 
  Country: None (occurrence: None)
  Receive Date: 20050113
  Receipt Date: 20041230
  Transmission Date: 20050727
  Serious: Yes (Hospitalization)
  Sender: FDA-Public Use
  Company Number: 2004AL002139

PATIENT
  Age: 52 Year
  Sex: Female

DRUGS (1)
  1. TRIAMCINOLONE ACETONIDE CREAM USP, 0.1% (ALPHARMA) [Suspect]
     Indication: SCLERODERMA
     Dosage: BID; TOP
     Route: 061
     Dates: start: 20030301, end: 20030601

REACTIONS (21)
  - ABDOMINAL PAIN [None]
  - ACUTE RESPIRATORY FAILURE [None]
  - ALANINE AMINOTRANSFERASE INCREASED [None]
  - ANTINUCLEAR ANTIBODY POSITIVE [None]
  - ASPARTATE AMINOTRANSFERASE INCREASED [None]
  - BLOOD CREATINE DECREASED [None]
  - CHEST DISCOMFORT [None]
  - CREPITATIONS [None]
  - DIARRHOEA [None]
  - DYSPNOEA [None]
  - GENERALISED OEDEMA [None]
  - HAEMATOCRIT DECREASED [None]
  - HAEMODIALYSIS [None]
  - NAUSEA [None]
  - PLATELET COUNT DECREASED [None]
  - PROTEIN URINE [None]
  - RED BLOOD CELL SCHISTOCYTES PRESENT [None]
  - RED BLOOD CELLS URINE POSITIVE [None]
  - RESPIRATORY RATE INCREASED [None]
  - SCLERODERMA RENAL CRISIS [None]
  - SKIN HYPERPIGMENTATION [None]
